FAERS Safety Report 6981491-9 (Version None)
Quarter: 2010Q3

REPORT INFORMATION
  Report Type: 
  Country: None (occurrence: None)
  Receive Date: 20100914
  Receipt Date: 20100901
  Transmission Date: 20110219
  Serious: Yes (Other)
  Sender: FDA-Public Use
  Company Number: PHHY2010US57998

PATIENT
  Sex: Female

DRUGS (8)
  1. MIACALCIN [Suspect]
     Dosage: UNK
  2. CALCITONIN SALMON [Suspect]
     Indication: OSTEOPENIA
     Dosage: 200 IU, UNK
     Route: 045
     Dates: start: 20100501
  3. HYDROCODONE [Concomitant]
     Indication: PAIN IN EXTREMITY
     Dosage: 250 PRN
     Dates: start: 20070101
  4. VIVELLE-DOT [Concomitant]
     Indication: HORMONE REPLACEMENT THERAPY
     Dosage: 0.1 MG, UNK
     Dates: start: 20050101
  5. FEXOFENADINE HCL [Concomitant]
     Indication: HYPERSENSITIVITY
     Dosage: 180 DF, QD
     Route: 048
     Dates: start: 20080101
  6. ATENOLOL [Concomitant]
     Indication: HYPERTENSION
     Dosage: 50 MG, QD
     Route: 048
     Dates: start: 20000101
  7. LISINOPRIL [Concomitant]
     Indication: HYPERTENSION
     Dosage: 20 MG, QD
     Route: 048
     Dates: start: 20000101
  8. ARMOUR [Concomitant]
     Indication: HYPOTHYROIDISM
     Dosage: 90 MG, QD
     Dates: start: 20090101

REACTIONS (3)
  - HYPOTHYROIDISM [None]
  - INTERVERTEBRAL DISC PROTRUSION [None]
  - PAIN IN EXTREMITY [None]
